FAERS Safety Report 12953099 (Version 1)
Quarter: 2016Q4

REPORT INFORMATION
  Report Type: Report from Study
  Country: US (occurrence: US)
  Receive Date: 20161117
  Receipt Date: 20161117
  Transmission Date: 20170207
  Serious: No
  Sender: FDA-Public Use
  Company Number: US-AMGEN-USASL2016155444

PATIENT
  Age: 62 Year
  Sex: Female

DRUGS (3)
  1. ENBREL [Suspect]
     Active Substance: ETANERCEPT
     Indication: PSORIASIS
     Dosage: 50 MG, UNK
     Route: 065
  2. HUMIRA [Concomitant]
     Active Substance: ADALIMUMAB
  3. COSENTYX [Concomitant]
     Active Substance: SECUKINUMAB

REACTIONS (3)
  - Injection site erythema [Unknown]
  - Rubber sensitivity [Unknown]
  - Injection site induration [Unknown]

NARRATIVE: CASE EVENT DATE: 201611
